FAERS Safety Report 13507647 (Version 1)
Quarter: 2017Q2

REPORT INFORMATION
  Report Type: Spontaneous
  Country: US (occurrence: US)
  Receive Date: 20170502
  Receipt Date: 20170502
  Transmission Date: 20170830
  Serious: No
  Sender: FDA-Public Use
  Company Number: None

PATIENT
  Age: 63 Year
  Sex: Female

DRUGS (1)
  1. TACROLIMUS CAP 1MG [Suspect]
     Active Substance: TACROLIMUS

REACTIONS (4)
  - Gastrointestinal disorder [None]
  - Visual impairment [None]
  - Blood pressure increased [None]
  - White blood cell count decreased [None]

NARRATIVE: CASE EVENT DATE: 20150502
